FAERS Safety Report 6054677-8 (Version None)
Quarter: 2009Q1

REPORT INFORMATION
  Report Type: 
  Country: None (occurrence: None)
  Receive Date: 20090128
  Receipt Date: 20090120
  Transmission Date: 20090719
  Serious: Yes (Other)
  Sender: FDA-Public Use
  Company Number: GB-RANBAXY-2009RR-21051

PATIENT
  Age: 78 Year
  Sex: Male

DRUGS (4)
  1. ITRACONAZOLE [Suspect]
     Indication: ASPERGILLOMA
  2. SIMVASTATIN [Suspect]
     Indication: DRUG USE FOR UNKNOWN INDICATION
     Dosage: 40 MG, QD
  3. WARFARIN SODIUM [Concomitant]
  4. ZOLADEX [Suspect]
     Indication: PROSTATE CANCER

REACTIONS (4)
  - DRUG INTERACTION [None]
  - MYOPATHY [None]
  - POLYNEUROPATHY [None]
  - UBIQUINONE DECREASED [None]
